APPROVED DRUG PRODUCT: LOMOTIL
Active Ingredient: ATROPINE SULFATE; DIPHENOXYLATE HYDROCHLORIDE
Strength: 0.025MG;2.5MG
Dosage Form/Route: TABLET;ORAL
Application: N012462 | Product #001 | TE Code: AA
Applicant: PFIZER INC
Approved: Approved Prior to Jan 1, 1982 | RLD: Yes | RS: Yes | Type: RX